FAERS Safety Report 18751806 (Version 1)
Quarter: 2021Q1

REPORT INFORMATION
  Report Type: Spontaneous
  Country: US (occurrence: US)
  Receive Date: 20210118
  Receipt Date: 20210118
  Transmission Date: 20210419
  Serious: No
  Sender: FDA-Public Use
  Company Number: US-UNITED THERAPEUTICS-UNT-2021-000100

PATIENT
  Sex: Male
  Weight: 76.19 kg

DRUGS (3)
  1. TYVASO [Suspect]
     Active Substance: TREPROSTINIL
     Indication: PULMONARY ARTERIAL HYPERTENSION
     Dosage: UNK
     Dates: start: 20200918, end: 20210107
  2. SILDENAFIL CITRATE. [Concomitant]
     Active Substance: SILDENAFIL CITRATE
     Indication: PRODUCT USED FOR UNKNOWN INDICATION
     Dosage: UNK
     Route: 065
  3. TYVASO [Suspect]
     Active Substance: TREPROSTINIL
     Dosage: 18?54 ?G, QID

REACTIONS (7)
  - Therapy non-responder [Unknown]
  - Asthenia [Unknown]
  - Dyspnoea [Unknown]
  - Skin discolouration [Recovering/Resolving]
  - Fatigue [Recovering/Resolving]
  - Oxygen saturation decreased [Not Recovered/Not Resolved]
  - Head discomfort [Recovered/Resolved]
